FAERS Safety Report 6420551-8 (Version None)
Quarter: 2009Q4

REPORT INFORMATION
  Report Type: 
  Country: None (occurrence: None)
  Receive Date: 20091027
  Receipt Date: 20091013
  Transmission Date: 20100525
  Serious: Yes (Other)
  Sender: FDA-Public Use
  Company Number: 2009S1000320

PATIENT
  Age: 30 Year
  Sex: Male

DRUGS (1)
  1. ACITRETIN [Suspect]
     Indication: PSORIASIS
     Dosage: 35 MG; QD; PO
     Route: 048
     Dates: start: 20090101

REACTIONS (1)
  - ERECTILE DYSFUNCTION [None]
